FAERS Safety Report 5477449-1 (Version None)
Quarter: 2007Q4

REPORT INFORMATION
  Report Type: 
  Country: None (occurrence: None)
  Receive Date: 20071001
  Receipt Date: 20070925
  Transmission Date: 20080405
  Serious: Yes (Death, Other)
  Sender: FDA-Public Use
  Company Number: 2007SP018782

PATIENT
  Sex: Female

DRUGS (2)
  1. SCREENING PHASE (SCREENING PHASE) [Suspect]
     Indication: DRUG USE FOR UNKNOWN INDICATION
  2. SEPTRA [Suspect]

REACTIONS (3)
  - HEPATIC ENZYME INCREASED [None]
  - JAUNDICE [None]
  - RENAL FAILURE [None]
